FAERS Safety Report 4847076-5 (Version None)
Quarter: 2005Q4

REPORT INFORMATION
  Report Type: 
  Country: None (occurrence: None)
  Receive Date: 20051206
  Receipt Date: 20051206
  Transmission Date: 20060501
  Serious: Yes (Other)
  Sender: FDA-Public Use
  Company Number: None

PATIENT
  Age: 5 Year
  Sex: Male
  Weight: 24.0406 kg

DRUGS (2)
  1. ABILIFY [Suspect]
     Indication: BIPOLAR DISORDER
     Dosage: 2.5MG  QAM  PO
     Route: 048
     Dates: start: 20051008, end: 20051009
  2. ABILIFY [Suspect]
     Indication: POST-TRAUMATIC STRESS DISORDER
     Dosage: 2.5MG  QAM  PO
     Route: 048
     Dates: start: 20051008, end: 20051009

REACTIONS (1)
  - GRAND MAL CONVULSION [None]
